FAERS Safety Report 5380958-7 (Version None)
Quarter: 2007Q3

REPORT INFORMATION
  Report Type: 
  Country: None (occurrence: None)
  Receive Date: 20070706
  Receipt Date: 20070702
  Transmission Date: 20080115
  Serious: Yes (Death)
  Sender: FDA-Public Use
  Company Number: JP-ELI_LILLY_AND_COMPANY-JP200707000484

PATIENT
  Sex: Male

DRUGS (1)
  1. HUMACART NPH [Suspect]
     Indication: DIABETES MELLITUS
     Dosage: UNK, UNK
     Route: 058

REACTIONS (1)
  - DEATH [None]
